FAERS Safety Report 25871345 (Version 1)
Quarter: 2025Q4

REPORT INFORMATION
  Report Type: Spontaneous
  Country: US (occurrence: US)
  Receive Date: 20251001
  Receipt Date: 20251001
  Transmission Date: 20260118
  Serious: Yes (Hospitalization, Other)
  Sender: GLAXOSMITHKLINE
  Company Number: US-GSK-US2025123371

PATIENT
  Age: 73 Year
  Sex: Male

DRUGS (1)
  1. TRELEGY ELLIPTA [Suspect]
     Active Substance: FLUTICASONE FUROATE\UMECLIDINIUM BROMIDE\VILANTEROL TRIFENATATE
     Indication: Chronic obstructive pulmonary disease
     Dosage: UNK, 200/62.5/25MCG, ONCE DAILY

REACTIONS (6)
  - Pneumonia [Unknown]
  - White blood cell count abnormal [Unknown]
  - Urinary tract disorder [Unknown]
  - Overdose [Unknown]
  - Drug ineffective [Unknown]
  - Product use in unapproved indication [Unknown]
